FAERS Safety Report 8144839-8 (Version None)
Quarter: 2012Q1

REPORT INFORMATION
  Report Type: 
  Country: None (occurrence: None)
  Receive Date: 20120217
  Receipt Date: 20120209
  Transmission Date: 20120608
  Serious: Yes (Hospitalization)
  Sender: FDA-Public Use
  Company Number: US-GLAXOSMITHKLINE-A0886603A

PATIENT
  Age: 59 Year
  Sex: Female
  Weight: 115.9 kg

DRUGS (9)
  1. AVANDAMET [Suspect]
     Indication: DIABETES MELLITUS
     Route: 048
     Dates: start: 20040101, end: 20050101
  2. METFORMIN HCL [Concomitant]
  3. AVANDIA [Suspect]
     Indication: DIABETES MELLITUS
     Dosage: 2MG PER DAY
     Route: 048
     Dates: start: 20040101, end: 20070101
  4. BENICAR HCT [Concomitant]
  5. PREVACID [Concomitant]
  6. CLONAZEPAM [Concomitant]
  7. CYMBALTA [Concomitant]
  8. FLEXERIL [Concomitant]
  9. METOPROLOL TARTRATE [Concomitant]

REACTIONS (5)
  - CHEST DISCOMFORT [None]
  - PALPITATIONS [None]
  - HEART RATE IRREGULAR [None]
  - DIZZINESS [None]
  - SINUS TACHYCARDIA [None]
